FAERS Safety Report 14842192 (Version 4)
Quarter: 2019Q3

REPORT INFORMATION
  Report Type: Report from Study
  Country: CA (occurrence: CA)
  Receive Date: 20180503
  Receipt Date: 20190801
  Transmission Date: 20191004
  Serious: Yes (Other)
  Sender: FDA-Public Use
  Company Number: CA-BRISTOL-MYERS SQUIBB COMPANY-BMS-2017-111134

PATIENT
  Age: 49 Year
  Sex: Female

DRUGS (2)
  1. ABATACEPT [Suspect]
     Active Substance: ABATACEPT
     Indication: RHEUMATOID ARTHRITIS
     Dosage: 1000 MG, Q3WK
     Route: 042
     Dates: start: 20150413
  2. ABATACEPT [Suspect]
     Active Substance: ABATACEPT
     Indication: PRODUCT USED FOR UNKNOWN INDICATION
     Dosage: 1000 MG, Q4WK
     Route: 042
     Dates: start: 20181114

REACTIONS (8)
  - Tendonitis [Unknown]
  - Joint swelling [Unknown]
  - Crepitations [Recovered/Resolved]
  - Malaise [Unknown]
  - Arthralgia [Unknown]
  - Off label use [Unknown]
  - Nasopharyngitis [Recovering/Resolving]
  - Rheumatoid arthritis [Unknown]

NARRATIVE: CASE EVENT DATE: 20171205
